FAERS Safety Report 18611739 (Version 2)
Quarter: 2021Q1

REPORT INFORMATION
  Report Type: Report from Study
  Country: None (occurrence: US)
  Receive Date: 20201214
  Receipt Date: 20210307
  Transmission Date: 20210419
  Serious: Yes (Hospitalization)
  Sender: FDA-Public Use
  Company Number: US-ABBVIE-20K-163-3684763-00

PATIENT
  Age: 69 Year
  Sex: Male

DRUGS (1)
  1. RINVOQ [Suspect]
     Active Substance: UPADACITINIB
     Indication: RHEUMATOID ARTHRITIS
     Route: 048

REACTIONS (4)
  - Rheumatoid arthritis [Recovering/Resolving]
  - COVID-19 [Not Recovered/Not Resolved]
  - Pneumonia [Recovered/Resolved]
  - Pneumonia [Recovering/Resolving]

NARRATIVE: CASE EVENT DATE: 202012
